FAERS Safety Report 26191147 (Version 1)
Quarter: 2025Q4

REPORT INFORMATION
  Report Type: Report from Study
  Country: US (occurrence: US)
  Receive Date: 20251223
  Receipt Date: 20251223
  Transmission Date: 20260117
  Serious: Yes (Other)
  Sender: DECIPHERA PHARMACEUTICALS
  Company Number: US-DECIPHERA PHARMACEUTICALS LLC-2025US001547

PATIENT
  Age: 72 Year
  Sex: Female

DRUGS (2)
  1. QINLOCK [Suspect]
     Active Substance: RIPRETINIB
     Indication: Gastrointestinal stromal tumour
     Dosage: 150 MILLIGRAM, QD (50MG (3) TABLETS ON MONDAY-WEDNESDAY-FRIDAY, 50MG (2) TABLETS ALL OTHER DAYS)
     Dates: start: 20250827
  2. QINLOCK [Suspect]
     Active Substance: RIPRETINIB
     Dosage: 100 MILLIGRAM, QD (50MG (3) TABLETS ON MONDAY-WEDNESDAY-FRIDAY, 50MG (2) TABLETS ALL OTHER DAYS)
     Dates: start: 2025

REACTIONS (3)
  - Malignant neoplasm progression [Unknown]
  - Incorrect dosage administered [Unknown]
  - Inappropriate schedule of product administration [Unknown]

NARRATIVE: CASE EVENT DATE: 20250101
